FAERS Safety Report 6293666-5 (Version None)
Quarter: 2009Q3

REPORT INFORMATION
  Report Type: 
  Country: None (occurrence: None)
  Receive Date: 20090803
  Receipt Date: 20090727
  Transmission Date: 20100115
  Serious: Yes (Hospitalization)
  Sender: FDA-Public Use
  Company Number: JP-SP-2009-03081

PATIENT
  Age: 70 Year
  Sex: Male

DRUGS (1)
  1. IMMUCYST [Suspect]
     Indication: BLADDER CANCER
     Route: 043
     Dates: start: 20090410, end: 20090515

REACTIONS (4)
  - CONTRACTED BLADDER [None]
  - DYSURIA [None]
  - POLLAKIURIA [None]
  - URINE OUTPUT DECREASED [None]
